APPROVED DRUG PRODUCT: TOLTERODINE TARTRATE
Active Ingredient: TOLTERODINE TARTRATE
Strength: 2MG
Dosage Form/Route: TABLET;ORAL
Application: A204721 | Product #002 | TE Code: AB
Applicant: PTS CONSULTING LLC
Approved: Jan 24, 2020 | RLD: No | RS: No | Type: RX